FAERS Safety Report 6091500-X (Version None)
Quarter: 2009Q1

REPORT INFORMATION
  Report Type: 
  Country: None (occurrence: None)
  Receive Date: 20090225
  Receipt Date: 20090219
  Transmission Date: 20090719
  Serious: Yes (Death, Hospitalization)
  Sender: FDA-Public Use
  Company Number: US-ASTRAZENECA-2009UW04753

PATIENT
  Age: 621 Month
  Sex: Female
  Weight: 94.1 kg

DRUGS (3)
  1. FASLODEX [Suspect]
     Indication: BREAST CANCER METASTATIC
     Dosage: FULVESTRANT 500 MG DAY 1 THEN 250 MG ON DAY 14/DAY 28, FOLLOWED BY MONTHLY INJECTIONS OF 250 MG
     Route: 030
     Dates: start: 20080721, end: 20081208
  2. ARIMIDEX [Suspect]
     Indication: BREAST CANCER METASTATIC
     Route: 048
     Dates: start: 20080721, end: 20081228
  3. HYDROCHLOROTHIAZIDE [Suspect]
     Route: 065

REACTIONS (5)
  - CONFUSIONAL STATE [None]
  - DEATH [None]
  - DEHYDRATION [None]
  - HYPERCALCAEMIA [None]
  - HYPONATRAEMIA [None]
